FAERS Safety Report 9284967 (Version 1)
Quarter: 2013Q2

REPORT INFORMATION
  Report Type: Report from Study
  Country: US (occurrence: US)
  Receive Date: 20130513
  Receipt Date: 20130513
  Transmission Date: 20140414
  Serious: Yes (Other)
  Sender: FDA-Public Use
  Company Number: PHEH2013US007410

PATIENT
  Sex: Female
  Weight: 108.84 kg

DRUGS (9)
  1. GILENYA [Suspect]
     Indication: MULTIPLE SCLEROSIS
     Dosage: 0.5 MG, QD
     Route: 048
  2. CELEXA [Suspect]
     Indication: DEPRESSED MOOD
     Dosage: 1 DF, QD
     Route: 048
  3. LASIX [Concomitant]
     Dosage: 20 MG, QD
     Route: 048
  4. LASIX [Concomitant]
     Dosage: 40 MG, UNK
     Route: 048
  5. KLOR-CON [Concomitant]
     Dosage: 10 MBQ, QD
     Route: 048
  6. VIT D3 [Concomitant]
     Dosage: 2000 U, QD
     Route: 048
  7. VITAMIN B12 [Concomitant]
     Dosage: 1000 UG, QD
     Route: 048
  8. ZOLOFT [Concomitant]
     Dosage: 25 MG, UNK
     Route: 048
  9. CALCIUM +D                         /00944201/ [Concomitant]

REACTIONS (7)
  - Oedema peripheral [Unknown]
  - Feeling abnormal [Unknown]
  - Nightmare [Unknown]
  - Hypokinesia [Unknown]
  - Fatigue [Unknown]
  - Weight increased [Unknown]
  - Depressed mood [Unknown]
